FAERS Safety Report 11577303 (Version 1)
Quarter: 2015Q3

REPORT INFORMATION
  Report Type: Spontaneous
  Country: US (occurrence: US)
  Receive Date: 20150930
  Receipt Date: 20150930
  Transmission Date: 20151125
  Serious: No
  Sender: FDA-Public Use
  Company Number: US-GLAXOSMITHKLINE-US2015135745

PATIENT
  Age: 58 Year
  Sex: Female

DRUGS (8)
  1. CRANBERRY PILLS [Concomitant]
  2. CLARITIN [Concomitant]
     Active Substance: LORATADINE
  3. PREVACID [Concomitant]
     Active Substance: LANSOPRAZOLE
  4. TYLENOL [Concomitant]
     Active Substance: ACETAMINOPHEN
  5. COREG [Suspect]
     Active Substance: CARVEDILOL
     Indication: HEART RATE
     Dosage: 3.125 MG, BID
     Route: 048
     Dates: start: 2012
  6. RABAVERT [Suspect]
     Active Substance: RABIES VIRUS STRAIN FLURY LEP ANTIGEN (PROPIOLACTONE INACTIVATED)
     Indication: RABIES
     Dosage: 1 ML, 1D
     Route: 042
     Dates: start: 20150915
  7. MOTRIN [Concomitant]
     Active Substance: IBUPROFEN
  8. ASPIRIN (BABY) [Concomitant]
     Active Substance: ASPIRIN

REACTIONS (7)
  - Blood pressure fluctuation [Not Recovered/Not Resolved]
  - Heart rate increased [Not Recovered/Not Resolved]
  - Spinal pain [Not Recovered/Not Resolved]
  - Headache [Not Recovered/Not Resolved]
  - Neck pain [Not Recovered/Not Resolved]
  - Hypoaesthesia [Not Recovered/Not Resolved]
  - Drug administration error [Unknown]

NARRATIVE: CASE EVENT DATE: 20150915
